FAERS Safety Report 9785472 (Version 2)
Quarter: 2014Q1

REPORT INFORMATION
  Report Type: Spontaneous
  Country: US (occurrence: US)
  Receive Date: 20131227
  Receipt Date: 20140203
  Transmission Date: 20141002
  Serious: Yes (Other)
  Sender: FDA-Public Use
  Company Number: US-BAYER-2013-157670

PATIENT
  Age: 72 Year
  Sex: Male
  Weight: 86.18 kg

DRUGS (10)
  1. XARELTO [Suspect]
     Indication: CEREBROVASCULAR ACCIDENT PROPHYLAXIS
     Route: 048
     Dates: start: 20131129, end: 20131206
  2. XARELTO [Suspect]
     Indication: ATRIAL FIBRILLATION
  3. WARFARIN [Suspect]
     Indication: PRODUCT USED FOR UNKNOWN INDICATION
     Route: 065
  4. BABY ASPIRIN [Suspect]
     Indication: PRODUCT USED FOR UNKNOWN INDICATION
     Dosage: 81 MG, BID
     Route: 065
  5. RANEXA [Concomitant]
     Dosage: 1 G, BID
     Route: 065
  6. LEXAPRO [Concomitant]
     Dosage: 5 G, BID
     Route: 065
  7. LIPITOR [Concomitant]
     Dosage: 10 MG, UNK
     Route: 065
  8. DIGOXIN [Concomitant]
     Dosage: 12.5 ?G, UNK
     Route: 065
  9. SYNTHROID [Concomitant]
     Dosage: 100 ?G, TID
     Route: 065
  10. OMEGA-3 FATTY ACIDS [Concomitant]
     Dosage: 1000 MG, BID
     Route: 065

REACTIONS (1)
  - Rectal haemorrhage [Recovered/Resolved]
